FAERS Safety Report 14029588 (Version 2)
Quarter: 2018Q1

REPORT INFORMATION
  Report Type: Spontaneous
  Country: US (occurrence: US)
  Receive Date: 20171002
  Receipt Date: 20180301
  Transmission Date: 20180508
  Serious: Yes (Death, Other)
  Sender: FDA-Public Use
  Company Number: US-JAZZ-2017-US-011396

PATIENT
  Age: 46 Year
  Sex: Male

DRUGS (3)
  1. XYREM [Suspect]
     Active Substance: SODIUM OXYBATE
     Indication: CATAPLEXY
     Dosage: 2.5 G, SECOND DOSE
     Route: 048
     Dates: start: 201703, end: 201708
  2. XYREM [Suspect]
     Active Substance: SODIUM OXYBATE
     Dosage: UNKNOWN DOSE
     Route: 048
     Dates: start: 20170828
  3. XYREM [Suspect]
     Active Substance: SODIUM OXYBATE
     Indication: NARCOLEPSY
     Dosage: 2 G, FIRST DOSE
     Route: 048
     Dates: start: 201703, end: 201708

REACTIONS (5)
  - Inappropriate schedule of drug administration [Unknown]
  - Cataplexy [Not Recovered/Not Resolved]
  - Death [Fatal]
  - Visual impairment [Not Recovered/Not Resolved]
  - Road traffic accident [Unknown]

NARRATIVE: CASE EVENT DATE: 201708
